FAERS Safety Report 5594997-4 (Version None)
Quarter: 2007Q4

REPORT INFORMATION
  Report Type: 
  Country: None (occurrence: None)
  Receive Date: 20071218
  Receipt Date: 20070320
  Transmission Date: 20080405
  Serious: Yes (Hospitalization, Other)
  Sender: FDA-Public Use
  Company Number: 2007022967

PATIENT
  Age: 60 Year
  Sex: Female
  Weight: 73.9 kg

DRUGS (1)
  1. BEXTRA [Suspect]
     Indication: INTERVERTEBRAL DISC PROTRUSION
     Dosage: 10MG AND 20MG (EVERY 8 HOURS)
     Dates: start: 20030101

REACTIONS (1)
  - MYOCARDIAL INFARCTION [None]
